FAERS Safety Report 7081158-5 (Version None)
Quarter: 2010Q4

REPORT INFORMATION
  Report Type: 
  Country: None (occurrence: None)
  Receive Date: 20101103
  Receipt Date: 20101026
  Transmission Date: 20110411
  Serious: Yes (Other)
  Sender: FDA-Public Use
  Company Number: B0681828A

PATIENT

DRUGS (2)
  1. FLOLAN [Suspect]
     Route: 042
  2. UNKNOWN DRUG [Concomitant]
     Route: 065

REACTIONS (1)
  - HYPOKALAEMIA [None]
